FAERS Safety Report 4568449-4 (Version None)
Quarter: 2005Q1

REPORT INFORMATION
  Report Type: 
  Country: None (occurrence: None)
  Receive Date: 20050131
  Receipt Date: 20050120
  Transmission Date: 20050727
  Serious: Yes (Other)
  Sender: FDA-Public Use
  Company Number: 2005-01-0573

PATIENT
  Age: 56 Year
  Sex: Male
  Weight: 80 kg

DRUGS (9)
  1. INTRON A [Suspect]
     Indication: HEPATITIS C
     Dosage: SEE IMAGE
     Route: 030
     Dates: start: 20040602, end: 20040618
  2. INTRON A [Suspect]
     Indication: HEPATITIS C
     Dosage: SEE IMAGE
     Route: 030
     Dates: start: 20040619, end: 20041208
  3. PEG-INTRON [Suspect]
     Indication: HEPATITIS C
     Dosage: 100 MCG QW SUBCUTANEOUS
     Route: 058
     Dates: start: 20041208
  4. REBETOL [Suspect]
     Indication: HEPATITIS C
     Dosage: 800 MG ORAL
     Route: 048
     Dates: start: 20040602
  5. AMLODIPINE BESYLATE [Concomitant]
  6. DIOVAN [Concomitant]
  7. RENIVACE [Concomitant]
  8. GASTER [Concomitant]
  9. LOXOPROFEN SODIUM [Concomitant]

REACTIONS (2)
  - DEPRESSIVE SYMPTOM [None]
  - RETINAL HAEMORRHAGE [None]
